FAERS Safety Report 19295747 (Version 2)
Quarter: 2021Q2

REPORT INFORMATION
  Report Type: Spontaneous
  Country: IN (occurrence: IN)
  Receive Date: 20210524
  Receipt Date: 20210614
  Transmission Date: 20210717
  Serious: Yes (Other)
  Sender: FDA-Public Use
  Company Number: IN-GLENMARK PHARMACEUTICALS-2021GMK054016

PATIENT
  Age: 60 Year
  Sex: Male

DRUGS (1)
  1. PEMETREXED DISODIUM [Suspect]
     Active Substance: PEMETREXED DISODIUM
     Indication: NON-SMALL CELL LUNG CANCER STAGE IV
     Dosage: 870 MILLIGRAM (CYCLICAL)
     Route: 065

REACTIONS (2)
  - Lacrimation increased [Recovered/Resolved]
  - Dacryostenosis acquired [Recovered/Resolved]
